FAERS Safety Report 6811825-7 (Version None)
Quarter: 2010Q2

REPORT INFORMATION
  Report Type: 
  Country: None (occurrence: None)
  Receive Date: 20100628
  Receipt Date: 20100617
  Transmission Date: 20101027
  Serious: Yes (Hospitalization)
  Sender: FDA-Public Use
  Company Number: 7008146

PATIENT
  Age: 78 Year
  Sex: Male

DRUGS (7)
  1. LEVOTHYROXINE SODIUM [Suspect]
     Indication: THYROIDECTOMY
     Dosage: 187.5 MCG (187.5 MCG, 1 IN 1 D); ORAL
     Route: 048
  2. COUMADIN [Suspect]
     Indication: THROMBOSIS PROPHYLAXIS
     Dosage: 2 DF (2 DF, 1 IN 1 D); ORAL
     Route: 048
     Dates: start: 20081001
  3. DEXAMETHASONE [Suspect]
     Indication: MULTIPLE MYELOMA
     Dosage: INTRAVENOUS (NOT OTHERWISE SPECIFIED)
     Route: 042
     Dates: start: 20081001
  4. BACTRIM [Suspect]
     Indication: PNEUMOCYSTIS JIROVECI PNEUMONIA
     Dosage: 0.2143 DF (0.5 DF, 3 IN 1 WK); ORAL
     Route: 048
     Dates: start: 20081001
  5. CITALOPRAM HYDROBROMIDE [Suspect]
     Indication: DEPRESSION
     Dosage: 1 DF (1 DF, 1 IN 1 D); ORAL
     Route: 048
  6. THALIDOMIDE [Concomitant]
  7. MELPHALAN (MELPHALAN) (MELPHALAN) [Concomitant]

REACTIONS (5)
  - DRUG INTERACTION [None]
  - HAEMATOMA [None]
  - HAEMATURIA [None]
  - INTERNATIONAL NORMALISED RATIO INCREASED [None]
  - OVERDOSE [None]
